FAERS Safety Report 13347731 (Version 1)
Quarter: 2017Q1

REPORT INFORMATION
  Report Type: Spontaneous
  Country: CN (occurrence: CN)
  Receive Date: 20170317
  Receipt Date: 20170317
  Transmission Date: 20170428
  Serious: Yes (Life-Threatening, Hospitalization, Other)
  Sender: FDA-Public Use
  Company Number: CN-BAUSCH-BL-2017-007114

PATIENT
  Age: 63 Year
  Sex: Male

DRUGS (11)
  1. THALIDOMIDE [Suspect]
     Active Substance: THALIDOMIDE
     Route: 065
     Dates: start: 201110
  2. NORVASC [Concomitant]
     Active Substance: AMLODIPINE BESYLATE
     Indication: HYPERTENSION
  3. BORTEZOMIB [Suspect]
     Active Substance: BORTEZOMIB
     Dosage: DAYS 1, 4, 8 AND 13
     Route: 065
     Dates: start: 20110901
  4. DEXAMETHASONE. [Suspect]
     Active Substance: DEXAMETHASONE
     Indication: PLASMA CELL MYELOMA
     Dosage: DAYS 1 TO 4
     Route: 065
     Dates: start: 201012, end: 201103
  5. NOVONORM [Concomitant]
     Active Substance: REPAGLINIDE
     Indication: DIABETES MELLITUS
  6. GLUCOPHAGE [Concomitant]
     Active Substance: METFORMIN HYDROCHLORIDE
     Indication: DIABETES MELLITUS
  7. THALIDOMIDE [Suspect]
     Active Substance: THALIDOMIDE
     Indication: PLASMA CELL MYELOMA
     Route: 065
     Dates: start: 20110901
  8. BORTEZOMIB [Suspect]
     Active Substance: BORTEZOMIB
     Indication: PLASMA CELL MYELOMA
     Dosage: DAYS 1, 4, 8 AND 13
     Route: 065
     Dates: start: 201012, end: 201103
  9. LEVEMIR [Concomitant]
     Active Substance: INSULIN DETEMIR
     Indication: DIABETES MELLITUS
     Dosage: QM
  10. DEXAMETHASONE. [Suspect]
     Active Substance: DEXAMETHASONE
     Dosage: DAYS 1 TO 4
     Route: 065
     Dates: start: 20110901
  11. DOXORUBICIN HYDROCHLORIDE. [Suspect]
     Active Substance: DOXORUBICIN HYDROCHLORIDE
     Indication: PLASMA CELL MYELOMA
     Dosage: DAY 4
     Route: 065
     Dates: start: 201012, end: 201103

REACTIONS (1)
  - Acute lymphocytic leukaemia [Unknown]
